FAERS Safety Report 9963404 (Version 3)
Quarter: 2014Q2

REPORT INFORMATION
  Report Type: Spontaneous
  Country: JP (occurrence: JP)
  Receive Date: 20140305
  Receipt Date: 20140505
  Transmission Date: 20141212
  Serious: Yes (Hospitalization)
  Sender: FDA-Public Use
  Company Number: JP-BRISTOL-MYERS SQUIBB COMPANY-20357646

PATIENT
  Age: 58 Year
  Sex: Female

DRUGS (10)
  1. ARIPIPRAZOLE [Suspect]
     Dates: start: 20131117, end: 20140105
  2. ARIPIPRAZOLE IM DEPOT [Suspect]
     Indication: BIPOLAR I DISORDER
     Dosage: LAST DOSE:22JAN13?ALSO TAKEN 17NOV13:ONG?23JAN13:ONG
     Dates: start: 20140106, end: 20140122
  3. ZOTEPINE [Concomitant]
     Dosage: ALSO TAKEN 23JAN13:23JAN13:50MG:ORAL
     Dates: start: 20131116, end: 20140111
  4. LITHIUM CARBONATE [Concomitant]
     Dosage: ALSO TAKEN 23JAN13:ONG:600MG:ORAL
     Dates: start: 20131116, end: 20140111
  5. LOXOPROFEN [Concomitant]
     Dates: start: 20131125
  6. REBAMIPIDE [Concomitant]
     Dates: start: 20131125
  7. SENNOSIDE [Concomitant]
     Dates: start: 20131223
  8. NITRAZEPAM [Concomitant]
     Indication: INSOMNIA
     Dates: start: 20131116
  9. ZOPICLONE [Concomitant]
     Dates: start: 20140116, end: 20140119
  10. LEVOPROMAZINE [Concomitant]

REACTIONS (4)
  - Mania [Recovered/Resolved]
  - Insomnia [Recovered/Resolved]
  - Purpura [Not Recovered/Not Resolved]
  - Epistaxis [Not Recovered/Not Resolved]
